FAERS Safety Report 5509274-7 (Version None)
Quarter: 2007Q4

REPORT INFORMATION
  Report Type: 
  Country: None (occurrence: None)
  Receive Date: 20071031
  Receipt Date: 20070625
  Transmission Date: 20080405
  Serious: No
  Sender: FDA-Public Use
  Company Number: 2007PV033058

PATIENT
  Age: 56 Year
  Sex: Female

DRUGS (3)
  1. SYMLIN [Suspect]
     Indication: TYPE 1 DIABETES MELLITUS
     Dosage: 60 MCG; SC  : 24 MCG; SC
     Route: 058
     Dates: start: 20070101, end: 20070101
  2. SYMLIN [Suspect]
     Indication: TYPE 1 DIABETES MELLITUS
     Dosage: 60 MCG; SC  : 24 MCG; SC
     Route: 058
     Dates: start: 20070101
  3. NOVOLOG [Concomitant]

REACTIONS (3)
  - CATARACT OPERATION [None]
  - HYPERGLYCAEMIA [None]
  - NAUSEA [None]
